FAERS Safety Report 6245141-1 (Version None)
Quarter: 2009Q2

REPORT INFORMATION
  Report Type: 
  Country: None (occurrence: None)
  Receive Date: 20090625
  Receipt Date: 20090616
  Transmission Date: 20091009
  Serious: Yes (Other)
  Sender: FDA-Public Use
  Company Number: FR-ASTRAZENECA-2009CG00767

PATIENT
  Age: 51 Year
  Sex: Male
  Weight: 65 kg

DRUGS (3)
  1. CRESTOR [Suspect]
     Indication: HYPERCHOLESTEROLAEMIA
     Route: 048
     Dates: start: 20071201, end: 20090501
  2. ATACAND [Concomitant]
     Indication: HYPERTENSION
     Route: 048
     Dates: start: 20070601
  3. SYMBICORT [Concomitant]
     Indication: ASTHMA
     Route: 055

REACTIONS (2)
  - ABDOMINAL PAIN [None]
  - LIPASE INCREASED [None]
